FAERS Safety Report 22117148 (Version 1)
Quarter: 2023Q1

REPORT INFORMATION
  Report Type: Spontaneous
  Country: US (occurrence: US)
  Receive Date: 20230320
  Receipt Date: 20230320
  Transmission Date: 20230418
  Serious: No
  Sender: FDA-Public Use
  Company Number: US-TEVA-2023-US-2862788

PATIENT
  Age: 58 Year
  Sex: Female

DRUGS (1)
  1. COPAXONE [Suspect]
     Active Substance: GLATIRAMER ACETATE
     Indication: Product used for unknown indication
     Route: 065

REACTIONS (9)
  - Diarrhoea [Unknown]
  - Gastric disorder [Unknown]
  - Muscle spasms [Unknown]
  - Asthenia [Unknown]
  - Urinary incontinence [Unknown]
  - Feeling abnormal [Unknown]
  - Hot flush [Unknown]
  - Musculoskeletal disorder [Unknown]
  - Anal incontinence [Unknown]
